FAERS Safety Report 7685677-X (Version None)
Quarter: 2011Q3

REPORT INFORMATION
  Report Type: 
  Country: None (occurrence: None)
  Receive Date: 20110815
  Receipt Date: 20110815
  Transmission Date: 20111222
  Serious: No
  Sender: FDA-Public Use
  Company Number: None

PATIENT
  Sex: Female
  Weight: 99.7913 kg

DRUGS (2)
  1. DEXILANT [Suspect]
     Indication: ABDOMINAL DISTENSION
     Dosage: 1 CAPSULE AFTER DINNER 5 DAYS
     Dates: start: 20110622, end: 20110626
  2. DEXILANT [Suspect]
     Indication: DYSPEPSIA
     Dosage: 1 CAPSULE AFTER DINNER 5 DAYS
     Dates: start: 20110622, end: 20110626

REACTIONS (1)
  - NASOPHARYNGITIS [None]
